FAERS Safety Report 13296220 (Version 5)
Quarter: 2017Q2

REPORT INFORMATION
  Report Type: Spontaneous
  Country: DE (occurrence: DE)
  Receive Date: 20170304
  Receipt Date: 20170605
  Transmission Date: 20170830
  Serious: Yes (Death, Other)
  Sender: FDA-Public Use
  Company Number: DE-AMGEN-DEUSP2017031933

PATIENT
  Age: 49 Year
  Sex: Female
  Weight: 52 kg

DRUGS (20)
  1. XIPAMID [Concomitant]
     Active Substance: XIPAMIDE
     Indication: CORONARY ARTERY DISEASE
     Dosage: 10 MG, QD
  2. ACETYLSALICYLIC ACID [Concomitant]
     Active Substance: ASPIRIN
     Dosage: 100 MG, UNK
  3. PROCORALAN [Concomitant]
     Active Substance: IVABRADINE
     Dosage: 5 MG, UNK
     Dates: end: 2016
  4. PREGALIN [Concomitant]
     Indication: PAIN
     Dosage: 75 MG, QD
  5. EZETIMIBE. [Concomitant]
     Active Substance: EZETIMIBE
     Dosage: 10 MG, UNK
  6. EFIENT [Concomitant]
     Active Substance: PRASUGREL HYDROCHLORIDE
     Dosage: 10 MG, QD
     Dates: end: 201607
  7. OMACOR [Concomitant]
     Active Substance: OMEGA-3-ACID ETHYL ESTERS
     Dosage: 1 G, UNK
  8. NOVAMINSULFON [Concomitant]
     Active Substance: METAMIZOLE
     Dosage: 20 UNK, AS NECESSARY
  9. REPATHA [Suspect]
     Active Substance: EVOLOCUMAB
     Indication: HYPERCHOLESTEROLAEMIA
     Dosage: 140 MG, Q2WK
     Route: 058
     Dates: start: 20160927, end: 20160927
  10. ALDACTONE [Concomitant]
     Active Substance: SPIRONOLACTONE
     Dosage: 25 MG, 1/2, UNK
  11. METOPROLOL RATIOPHARM [Concomitant]
     Dosage: 47.5 MG, UNK
  12. PANTOPRAZOLE [Concomitant]
     Active Substance: PANTOPRAZOLE
     Dosage: 40 MG, UNK
  13. MUCOFALK [Concomitant]
  14. DELIX [Concomitant]
     Active Substance: RAMIPRIL
     Dosage: 1.25 UNK, UNK
  15. BELOC ZOK [Concomitant]
     Active Substance: METOPROLOL SUCCINATE
     Dosage: 23.75 UNK, UNK
  16. TARGIN [Concomitant]
     Active Substance: NALOXONE HYDROCHLORIDE\OXYCODONE HYDROCHLORIDE
     Indication: PAIN
     Dosage: 20/10 MG
  17. RESOLOR [Concomitant]
     Active Substance: PRUCALOPRIDE SUCCINATE
     Dosage: 2 MG, UNK
  18. JENASPIRON [Concomitant]
     Active Substance: SPIRONOLACTONE
     Dosage: 50 MG, 0.5, UNK
  19. NOVORAPID [Concomitant]
     Active Substance: INSULIN ASPART
     Dosage: UNK
     Dates: start: 1989
  20. TOREM [Concomitant]
     Active Substance: TORSEMIDE
     Dosage: 20 MG, BID

REACTIONS (1)
  - Death [Fatal]

NARRATIVE: CASE EVENT DATE: 20160930
